FAERS Safety Report 16915224 (Version 1)
Quarter: 2019Q4

REPORT INFORMATION
  Report Type: Spontaneous
  Country: US (occurrence: US)
  Receive Date: 20190822
  Receipt Date: 20190822
  Transmission Date: 20200122
  Serious: No
  Sender: FDA-Public Use
  Company Number: None

PATIENT
  Age: 57 Year
  Sex: Female

DRUGS (1)
  1. ENBREL [Suspect]
     Active Substance: ETANERCEPT
     Indication: RHEUMATOID ARTHRITIS
     Route: 058
     Dates: start: 20190624

REACTIONS (4)
  - Condition aggravated [None]
  - Pain in extremity [None]
  - Asthenia [None]
  - Peripheral swelling [None]

NARRATIVE: CASE EVENT DATE: 201907
